FAERS Safety Report 6864645-1 (Version None)
Quarter: 2010Q3

REPORT INFORMATION
  Report Type: 
  Country: None (occurrence: None)
  Receive Date: 20100721
  Receipt Date: 20080527
  Transmission Date: 20110219
  Serious: No
  Sender: FDA-Public Use
  Company Number: US-PFIZER INC-2008028300

PATIENT
  Sex: Male
  Weight: 81.8 kg

DRUGS (14)
  1. CHANTIX [Suspect]
     Indication: SMOKING CESSATION THERAPY
     Dates: start: 20080301
  2. EFFEXOR [Concomitant]
  3. CLONAZEPAM [Concomitant]
  4. PLAVIX [Concomitant]
  5. VALSARTAN [Concomitant]
  6. INSULIN ASPART [Concomitant]
  7. ALL OTHER THERAPEUTIC PRODUCTS [Concomitant]
  8. OXYCODONE [Concomitant]
  9. MORPHINE SULFATE [Concomitant]
  10. NORVASC [Concomitant]
  11. ZETIA [Concomitant]
  12. LYRICA [Concomitant]
  13. TRICOR [Concomitant]
  14. VITAMINS [Concomitant]

REACTIONS (5)
  - DRUG INEFFECTIVE [None]
  - FEELING ABNORMAL [None]
  - MENTAL DISORDER [None]
  - MUSCLE DISORDER [None]
  - MUSCLE TIGHTNESS [None]
